FAERS Safety Report 24553127 (Version 1)
Quarter: 2024Q4

REPORT INFORMATION
  Report Type: Report from Study
  Country: IT (occurrence: IT)
  Receive Date: 20241028
  Receipt Date: 20241028
  Transmission Date: 20250115
  Serious: Yes (Other)
  Sender: JOHNSON AND JOHNSON
  Company Number: IT-JNJFOC-20241067133

PATIENT
  Age: 37 Year
  Sex: Male

DRUGS (2)
  1. SPRAVATO [Suspect]
     Active Substance: ESKETAMINE
     Indication: Depression
     Dosage: (2 DEVICES), TREATMENT RECEIVED ON: 12-DEC-2023.
     Dates: start: 20231204, end: 20231214
  2. SPRAVATO [Suspect]
     Active Substance: ESKETAMINE
     Dosage: (3 DEVICES), TREATMENT RECEIVED ON: 21-DEC-2023, 28-DEC-2023, 04-JAN-2024, 09-JAN-2024, 12-JAN-2024,
     Dates: start: 20231219, end: 20240321

REACTIONS (1)
  - Suicidal ideation [Recovered/Resolved]

NARRATIVE: CASE EVENT DATE: 20240321
